FAERS Safety Report 17877750 (Version 1)
Quarter: 2020Q2

REPORT INFORMATION
  Report Type: Spontaneous
  Country: KR (occurrence: KR)
  Receive Date: 20200609
  Receipt Date: 20200609
  Transmission Date: 20200714
  Serious: Yes (Life-Threatening)
  Sender: FDA-Public Use
  Company Number: KR-GE HEALTHCARE-VISP-PR-1501L-0014

PATIENT

DRUGS (2)
  1. VISIPAQUE [Suspect]
     Active Substance: IODIXANOL
     Indication: ANGIOGRAM CEREBRAL
  2. VISIPAQUE [Suspect]
     Active Substance: IODIXANOL
     Indication: CAROTID ARTERY ANEURYSM
     Dosage: 3.45 ML/KG, SINGLE (3.45 CM^3/KG = 193.2 ML), ONCE
     Route: 013

REACTIONS (3)
  - Blood brain barrier defect [Recovered/Resolved]
  - Coma scale abnormal [Recovered/Resolved]
  - Hemiparesis [Recovered/Resolved]
